FAERS Safety Report 4620154-1 (Version None)
Quarter: 2005Q1

REPORT INFORMATION
  Report Type: 
  Country: None (occurrence: None)
  Receive Date: 20050324
  Receipt Date: 20050308
  Transmission Date: 20050727
  Serious: Yes (Disabling)
  Sender: FDA-Public Use
  Company Number: S04-UKI-08309-01

PATIENT
  Sex: Female

DRUGS (10)
  1. CIPRAMIL (CITALOPRAM HYDROBROMIDE) [Suspect]
     Dates: start: 20001201
  2. LOPERAMIDE HCL [Suspect]
     Dates: start: 20040301
  3. VENLAFAXINE [Suspect]
     Dates: start: 20040401
  4. LENTIZOL                    (AMITRIPTYLINE HYDROCHLORIDE) [Suspect]
     Dates: start: 20040611
  5. FLUOXETINE [Suspect]
     Dates: start: 20000126
  6. PAROXETINE HCL [Suspect]
     Dates: start: 20010206
  7. DOTHIEPIN HYDROCHLORIDE [Suspect]
     Dates: start: 20011012
  8. MIRTAZAPINE [Suspect]
     Dates: start: 20010730
  9. OMEPRAZOLE [Concomitant]
  10. LOSARTAN POTASSIUM [Concomitant]

REACTIONS (3)
  - BLEPHARITIS [None]
  - EYE PRURITUS [None]
  - EYELID OEDEMA [None]
